APPROVED DRUG PRODUCT: MALATHION
Active Ingredient: MALATHION
Strength: 0.5%
Dosage Form/Route: LOTION;TOPICAL
Application: A078743 | Product #001
Applicant: PHARMOBEDIENT CONSULTING LLC
Approved: Mar 6, 2009 | RLD: No | RS: No | Type: DISCN